FAERS Safety Report 6694281-1 (Version None)
Quarter: 2010Q2

REPORT INFORMATION
  Report Type: 
  Country: None (occurrence: None)
  Receive Date: 20100421
  Receipt Date: 20100407
  Transmission Date: 20101027
  Serious: Yes (Hospitalization)
  Sender: FDA-Public Use
  Company Number: 2010AL000072

PATIENT
  Age: 68 Year
  Sex: Female
  Weight: 87.5442 kg

DRUGS (31)
  1. PRALATREXATE (PRALATREXATE) [Suspect]
     Indication: NON-HODGKIN'S LYMPHOMA
     Dosage: 30 MG; QOW; IV
     Route: 042
     Dates: start: 20100125, end: 20100322
  2. GEMCITABINE [Suspect]
     Indication: NON-HODGKIN'S LYMPHOMA
     Dosage: 1200 MG; QOW; IV
     Route: 042
     Dates: start: 20100125, end: 20100322
  3. ACYCLOVIR [Concomitant]
  4. ALBUTEROL SULFATE AUTOHALER [Concomitant]
  5. CLONIDINE [Concomitant]
  6. DILTIAZEM HCL [Concomitant]
  7. FENOFIBRATE [Concomitant]
  8. FLUTICASONE PROPIONATE [Concomitant]
  9. FOLIC ACID [Concomitant]
  10. FUROSEMIDE [Concomitant]
  11. ACETAMINOPHEN AND HYDROCODONE BITARTRATE [Concomitant]
  12. HYDROCORTISONE [Concomitant]
  13. HYDROCORTISONE W/PRAMOXINE [Concomitant]
  14. LIDOCAINE HYDROCHLORIDE [Concomitant]
  15. LIDOCAINE W/PRILOCAINE [Concomitant]
  16. AMYLASE W/LIPASE/PROTEASE [Concomitant]
  17. LORAZEPAM [Concomitant]
  18. METOPROLOL TARTRATE [Concomitant]
  19. NIFEDIPINE [Concomitant]
  20. OMEPRAZOLE SODIUM [Concomitant]
  21. ONDANSETRON HYDROCHLORIDE [Concomitant]
  22. POTASSIUM CHLORIDE [Concomitant]
  23. TRIMETHOPRIM + SULFAMETHOXAZOLE [Concomitant]
  24. AVELOX [Concomitant]
  25. CYANOCOBALAMIN [Concomitant]
  26. ACETAMINOPHEN W/DIPHENHYDRAMINE [Concomitant]
  27. HYDROCHLORIDE [Concomitant]
  28. ERGOCALCIFEROL [Concomitant]
  29. LORATADINE [Concomitant]
  30. MAGNESIUM [Concomitant]
  31. OMEGA-3 FATTY ACIDS [Concomitant]

REACTIONS (1)
  - PLEURISY [None]
